FAERS Safety Report 12628006 (Version 2)
Quarter: 2016Q3

REPORT INFORMATION
  Report Type: Spontaneous
  Country: US (occurrence: US)
  Receive Date: 20160807
  Receipt Date: 20160815
  Transmission Date: 20161109
  Serious: No
  Sender: FDA-Public Use
  Company Number: US-009507513-1607USA013071

PATIENT
  Age: 63 Year
  Sex: Female
  Weight: 58.5 kg

DRUGS (7)
  1. PROVENTIL [Suspect]
     Active Substance: ALBUTEROL
     Indication: EMPHYSEMA
  2. NORVASC [Concomitant]
     Active Substance: AMLODIPINE BESYLATE
  3. ASPIRIN. [Concomitant]
     Active Substance: ASPIRIN
     Route: 048
  4. ZOCOR [Concomitant]
     Active Substance: SIMVASTATIN
     Route: 048
  5. METOPROLOL. [Concomitant]
     Active Substance: METOPROLOL
  6. PROVENTIL [Suspect]
     Active Substance: ALBUTEROL
     Indication: CHRONIC OBSTRUCTIVE PULMONARY DISEASE
     Dosage: 1-2 PUFFS EVERY 4-6 HOURS
     Route: 055
     Dates: start: 2015
  7. LEVOTHYROXINE SODIUM. [Concomitant]
     Active Substance: LEVOTHYROXINE SODIUM
     Route: 048

REACTIONS (2)
  - Sensation of foreign body [Recovered/Resolved]
  - Product quality issue [Unknown]

NARRATIVE: CASE EVENT DATE: 20160727
